FAERS Safety Report 8099525-X (Version None)
Quarter: 2012Q1

REPORT INFORMATION
  Report Type: 
  Country: None (occurrence: None)
  Receive Date: 20120129
  Receipt Date: 20111018
  Transmission Date: 20120608
  Serious: No
  Sender: FDA-Public Use
  Company Number: US-ABBOTT-11P-163-0858094-00

PATIENT
  Sex: Female
  Weight: 77.18 kg

DRUGS (5)
  1. SULINDAC [Concomitant]
     Indication: OSTEOARTHRITIS
  2. HUMIRA [Suspect]
     Indication: RHEUMATOID ARTHRITIS
     Route: 058
     Dates: start: 20110601
  3. ATENOLOL [Concomitant]
     Indication: HYPERTENSION
  4. METHOTREXATE [Suspect]
     Indication: PSORIATIC ARTHROPATHY
     Route: 048
     Dates: start: 20091201
  5. HORMONES [Concomitant]
     Indication: MENOPAUSE

REACTIONS (7)
  - HAEMORRHAGE [None]
  - VISION BLURRED [None]
  - EYE PRURITUS [None]
  - DIPLOPIA [None]
  - CONTUSION [None]
  - OEDEMA PERIPHERAL [None]
  - FOREIGN BODY SENSATION IN EYES [None]
